FAERS Safety Report 22382837 (Version 1)
Quarter: 2023Q2

REPORT INFORMATION
  Report Type: Spontaneous
  Country: US (occurrence: None)
  Receive Date: 20230526
  Receipt Date: 20230526
  Transmission Date: 20230722
  Serious: Yes (Other)
  Sender: FDA-Public Use
  Company Number: None

PATIENT
  Age: 4 Year
  Sex: Male
  Weight: 20.4 kg

DRUGS (1)
  1. ETOPOPHOS [Suspect]
     Active Substance: ETOPOSIDE PHOSPHATE
     Indication: Neuroblastoma
     Dosage: FREQUENCY : DAILY;?
     Route: 042
     Dates: start: 20230524

REACTIONS (5)
  - Urticaria [None]
  - Throat tightness [None]
  - Dyspnoea [None]
  - Oxygen saturation decreased [None]
  - Nausea [None]

NARRATIVE: CASE EVENT DATE: 20230524
